FAERS Safety Report 5369570-3 (Version None)
Quarter: 2007Q2

REPORT INFORMATION
  Report Type: 
  Country: None (occurrence: None)
  Receive Date: 20070625
  Receipt Date: 20070613
  Transmission Date: 20071010
  Serious: Yes (Death)
  Sender: FDA-Public Use
  Company Number: TR-PFIZER INC-2007046076

PATIENT
  Age: 75 Year
  Sex: Female

DRUGS (1)
  1. CEFOPERAZONE/SULBACTAM [Suspect]
     Indication: PNEUMONIA ASPIRATION
     Route: 051

REACTIONS (1)
  - DEATH [None]
